FAERS Safety Report 12017058 (Version 1)
Quarter: 2016Q1

REPORT INFORMATION
  Report Type: Spontaneous
  Country: GE (occurrence: GE)
  Receive Date: 20160205
  Receipt Date: 20160205
  Transmission Date: 20160526
  Serious: Yes (Other)
  Sender: FDA-Public Use
  Company Number: GE-BAUSCH-BL-2016-002701

PATIENT
  Age: 28 Year
  Sex: Female

DRUGS (9)
  1. PREDNISOLONE. [Suspect]
     Active Substance: PREDNISOLONE
     Dosage: IMMUNOSUPPRESSION AFTER 3.5 YEARS POST-TRANSPLANT
     Route: 065
  2. MYCOPHENOLATE MOFETIL. [Suspect]
     Active Substance: MYCOPHENOLATE MOFETIL
     Indication: PRODUCT USED FOR UNKNOWN INDICATION
     Dosage: IMMUNOSUPPRESSION AT DISCHARGE
     Route: 065
  3. STAVUDINE. [Concomitant]
     Active Substance: STAVUDINE
     Indication: IMMUNOSUPPRESSANT DRUG THERAPY
     Dosage: EIGHTEEN MONTHS AFTER RENAL TRANSPLANTATION
     Route: 065
  4. ABACAVIR. [Concomitant]
     Active Substance: ABACAVIR
     Indication: IMMUNOSUPPRESSANT DRUG THERAPY
     Dosage: EIGHTEEN MONTHS AFTER RENAL TRANSPLANTATION
     Route: 065
  5. ABACAVIR. [Concomitant]
     Active Substance: ABACAVIR
     Indication: IMMUNOSUPPRESSANT DRUG THERAPY
     Dosage: IMMUNOSUPPRESSION AFTER 3.5 YEARS POST-TRANSPLANT
  6. TACROLIMUS. [Suspect]
     Active Substance: TACROLIMUS
     Indication: PRODUCT USED FOR UNKNOWN INDICATION
     Route: 065
  7. TACROLIMUS. [Suspect]
     Active Substance: TACROLIMUS
     Dosage: IMMUNOSUPPRESSION AFTER 3.5 YEARS POST-TRANSPLANT
     Route: 065
  8. PREDNISOLONE. [Suspect]
     Active Substance: PREDNISOLONE
     Indication: PRODUCT USED FOR UNKNOWN INDICATION
     Dosage: IMMUNOSUPPRESSION AT DISCHARGE
     Route: 065
  9. ISONIAZID. [Concomitant]
     Active Substance: ISONIAZID
     Indication: PRODUCT USED FOR UNKNOWN INDICATION
     Route: 065

REACTIONS (1)
  - Nephropathy [Recovering/Resolving]
